FAERS Safety Report 11271519 (Version 2)
Quarter: 2015Q3

REPORT INFORMATION
  Report Type: Report from Study
  Country: US (occurrence: US)
  Receive Date: 20150714
  Receipt Date: 20150826
  Transmission Date: 20151125
  Serious: Yes (Death, Hospitalization, Other)
  Sender: FDA-Public Use
  Company Number: US-GILEAD-2015-0163356

PATIENT
  Age: 80 Year
  Sex: Female

DRUGS (3)
  1. ADCIRCA [Concomitant]
     Active Substance: TADALAFIL
  2. COUMADIN [Concomitant]
     Active Substance: WARFARIN SODIUM
  3. AMBRISENTAN [Suspect]
     Active Substance: AMBRISENTAN
     Indication: PULMONARY HYPERTENSION
     Dosage: 5 MG, QD
     Route: 065
     Dates: start: 20150528, end: 20150615

REACTIONS (11)
  - Acute kidney injury [Unknown]
  - Dyspnoea exertional [Unknown]
  - Pleural effusion [Fatal]
  - Cardiac failure [Unknown]
  - Pneumothorax [Unknown]
  - Renal failure [Fatal]
  - Fluid overload [Unknown]
  - Right ventricular failure [Fatal]
  - Renal ischaemia [Unknown]
  - Cardiogenic shock [Fatal]
  - Pneumonia [Unknown]
